FAERS Safety Report 5123896-7 (Version None)
Quarter: 2006Q4

REPORT INFORMATION
  Report Type: 
  Country: None (occurrence: None)
  Receive Date: 20061010
  Receipt Date: 20060821
  Transmission Date: 20070319
  Serious: Yes (Hospitalization, Other)
  Sender: FDA-Public Use
  Company Number: IE-BRISTOL-MYERS SQUIBB COMPANY-13485701

PATIENT
  Age: 75 Year
  Sex: Male
  Weight: 70 kg

DRUGS (1)
  1. PRAVASTATIN [Suspect]
     Indication: BLOOD CHOLESTEROL INCREASED
     Dosage: LIPOSTAT STOPPED 20-AUG-2006 AND RESUMED WHEN LFTS REDUCED
     Route: 048

REACTIONS (2)
  - JAUNDICE CHOLESTATIC [None]
  - METASTASES TO LIVER [None]
